FAERS Safety Report 15578413 (Version 1)
Quarter: 2018Q4

REPORT INFORMATION
  Report Type: Spontaneous
  Country: US (occurrence: US)
  Receive Date: 20181101
  Receipt Date: 20181101
  Transmission Date: 20190205
  Serious: Yes (Hospitalization)
  Sender: FDA-Public Use
  Company Number: None

PATIENT
  Age: 23 Year
  Sex: Female
  Weight: 64.35 kg

DRUGS (1)
  1. ACYCLOVIR. [Suspect]
     Active Substance: ACYCLOVIR
     Dosage: ?          QUANTITY:15 TABLET(S);?
     Dates: start: 20180716, end: 20180720

REACTIONS (7)
  - Neuralgia [None]
  - Disturbance in attention [None]
  - Fatigue [None]
  - Diarrhoea [None]
  - Panic attack [None]
  - Feeling abnormal [None]
  - Visual impairment [None]

NARRATIVE: CASE EVENT DATE: 20180722
